FAERS Safety Report 11788680 (Version 1)
Quarter: 2015Q4

REPORT INFORMATION
  Report Type: Spontaneous
  Country: US (occurrence: None)
  Receive Date: 20151130
  Receipt Date: 20151130
  Transmission Date: 20160305
  Serious: No
  Sender: FDA-Public Use
  Company Number: None

PATIENT
  Age: 22 Year
  Sex: Male
  Weight: 124.74 kg

DRUGS (1)
  1. OLD SPICE CLASSIC ORIGINAL SCENT [Suspect]
     Active Substance: ALUMINUM ZIRCONIUM TRICHLOROHYDREX GLY
     Indication: HYPERHIDROSIS
     Dates: start: 20150801, end: 20151116

REACTIONS (2)
  - Rash [None]
  - Burning sensation [None]

NARRATIVE: CASE EVENT DATE: 20151101
